FAERS Safety Report 12480732 (Version 1)
Quarter: 2016Q2

REPORT INFORMATION
  Report Type: Spontaneous
  Country: GB (occurrence: GB)
  Receive Date: 20160620
  Receipt Date: 20160620
  Transmission Date: 20160815
  Serious: Yes (Other)
  Sender: FDA-Public Use
  Company Number: GB-TEVA-667373ACC

PATIENT
  Age: 44 Year
  Sex: Female
  Weight: 50.8 kg

DRUGS (5)
  1. VITAMIN C [Concomitant]
     Active Substance: ASCORBIC ACID
  2. VITAMIN D [Concomitant]
     Active Substance: CHOLECALCIFEROL
  3. MSM [Concomitant]
     Active Substance: DIMETHYL SULFONE
  4. DIAZEPAM. [Suspect]
     Active Substance: DIAZEPAM
     Indication: SPINAL DISORDER
     Route: 048
  5. ZINC [Concomitant]
     Active Substance: ZINC\ZINC CHLORIDE

REACTIONS (1)
  - Tongue movement disturbance [Recovering/Resolving]
